FAERS Safety Report 20578473 (Version 1)
Quarter: 2022Q1

REPORT INFORMATION
  Report Type: Report from Study
  Country: PK (occurrence: PK)
  Receive Date: 20220310
  Receipt Date: 20220310
  Transmission Date: 20220423
  Serious: Yes (Death)
  Sender: FDA-Public Use
  Company Number: PK-NOVARTISPH-NVSC2022PK056524

PATIENT
  Age: 44 Year
  Sex: Female
  Weight: 47 kg

DRUGS (2)
  1. KISQALI [Suspect]
     Active Substance: RIBOCICLIB
     Indication: Breast cancer
     Dosage: 600 MG, TID
     Route: 048
     Dates: start: 20211127, end: 20211224
  2. FULVESTRANT [Concomitant]
     Active Substance: FULVESTRANT
     Indication: Breast cancer metastatic
     Dosage: 500 MG (IM STAT)
     Route: 065
     Dates: start: 20211127

REACTIONS (1)
  - Death [Fatal]

NARRATIVE: CASE EVENT DATE: 20220108
